FAERS Safety Report 5379960-0 (Version None)
Quarter: 2007Q3

REPORT INFORMATION
  Report Type: 
  Country: None (occurrence: None)
  Receive Date: 20070706
  Receipt Date: 20070627
  Transmission Date: 20080115
  Serious: Yes (Other)
  Sender: FDA-Public Use
  Company Number: BR-JNJFOC-20070700528

PATIENT
  Age: 20 Year
  Sex: Male
  Weight: 110 kg

DRUGS (4)
  1. HALDOL [Suspect]
     Indication: SCHIZOPHRENIA
     Route: 048
  2. BIPERIDEN HYDROCHLORIDE TAB [Suspect]
     Indication: DRUG USE FOR UNKNOWN INDICATION
  3. PROMETHAZINE [Suspect]
     Indication: DRUG USE FOR UNKNOWN INDICATION
  4. DICLOFENAC [Suspect]
     Indication: DRUG USE FOR UNKNOWN INDICATION

REACTIONS (3)
  - MULTIPLE DRUG OVERDOSE [None]
  - SOMNOLENCE [None]
  - SUICIDE ATTEMPT [None]
